FAERS Safety Report 17065410 (Version 1)
Quarter: 2019Q4

REPORT INFORMATION
  Report Type: Spontaneous
  Country: US (occurrence: US)
  Receive Date: 20191122
  Receipt Date: 20191122
  Transmission Date: 20200122
  Serious: Yes (Other)
  Sender: FDA-Public Use
  Company Number: None

PATIENT
  Age: 58 Year
  Sex: Male
  Weight: 87.75 kg

DRUGS (13)
  1. PANTOPRAZOLE [Concomitant]
     Active Substance: PANTOPRAZOLE
  2. BUPROPION HCL ER (XL) 300MG TB24 [Suspect]
     Active Substance: BUPROPION HYDROCHLORIDE
     Indication: DEPRESSION
     Dosage: ?          QUANTITY:30 TABLET(S);?
     Route: 048
     Dates: start: 20191119, end: 20191122
  3. BUPROPION. [Concomitant]
     Active Substance: BUPROPION
  4. METOPROLOL. [Concomitant]
     Active Substance: METOPROLOL
  5. FLONASE [Concomitant]
     Active Substance: FLUTICASONE PROPIONATE
  6. BELBUCA [Concomitant]
     Active Substance: BUPRENORPHINE HYDROCHLORIDE
  7. BACLOFEN. [Concomitant]
     Active Substance: BACLOFEN
  8. CLARITIN [Concomitant]
     Active Substance: LORATADINE
  9. MULTIVITAMIN [Concomitant]
     Active Substance: VITAMINS
  10. VITAMIN D [Concomitant]
     Active Substance: VITAMIN D NOS
  11. VALSARTAN. [Concomitant]
     Active Substance: VALSARTAN
  12. HYDROCHLORATHIAZYDE [Concomitant]
  13. FLAXSEED [Concomitant]
     Active Substance: FLAX SEED

REACTIONS (3)
  - Product quality issue [None]
  - Dyspepsia [None]
  - Oropharyngeal pain [None]

NARRATIVE: CASE EVENT DATE: 20191119
